FAERS Safety Report 14545636 (Version 1)
Quarter: 2018Q1

REPORT INFORMATION
  Report Type: Spontaneous
  Country: TR (occurrence: TR)
  Receive Date: 20180218
  Receipt Date: 20180218
  Transmission Date: 20180509
  Serious: Yes (Other)
  Sender: FDA-Public Use
  Company Number: TR-BAXTER-2018BAX005506

PATIENT
  Age: 56 Year
  Sex: Male

DRUGS (5)
  1. UROMITEXAN 400MG/4ML IV ENJ. ICIN COZELTI ICEREN AMPUL [Suspect]
     Active Substance: MESNA
     Indication: PRODUCT USED FOR UNKNOWN INDICATION
     Dosage: STARTED IN MORNING
     Route: 065
  2. ADRIAMYCIN [Concomitant]
     Active Substance: DOXORUBICIN HYDROCHLORIDE
     Indication: PLASMA CELL MYELOMA
     Dosage: VAD REGIMEN, 4 COURSES
     Route: 065
  3. VINCRISTINE [Concomitant]
     Active Substance: VINCRISTINE
     Indication: PLASMA CELL MYELOMA
     Dosage: VAD REGIMEN, 4 COURSES
     Route: 065
  4. DEXAMETHASONE. [Concomitant]
     Active Substance: DEXAMETHASONE
     Indication: PLASMA CELL MYELOMA
     Dosage: VAD REGIMEN, 4 COURSES
     Route: 065
  5. ENDOXAN 1G IV INFUZ. ICIN TOZ ICEREN FLAKON [Suspect]
     Active Substance: CYCLOPHOSPHAMIDE
     Indication: HAEMATOPOIETIC STEM CELL MOBILISATION
     Dosage: STARTED IN MORNING
     Route: 065

REACTIONS (1)
  - Atrial fibrillation [Recovered/Resolved]
